FAERS Safety Report 9293998 (Version 1)
Quarter: 2013Q1

REPORT INFORMATION
  Report Type: Spontaneous
  Country: US (occurrence: None)
  Receive Date: 20121227
  Receipt Date: 20121227
  Transmission Date: 20140127
  Serious: Yes (Other)
  Sender: FDA-Public Use
  Company Number: PHEH2012US004931

PATIENT
  Age: 84 Year
  Sex: Female

DRUGS (1)
  1. EXJADE [Suspect]
     Indication: IRON METABOLISM DISORDER
     Dosage: 22 MG/KG/DAY (1500 MG DAILY), ORAL
     Route: 048
     Dates: start: 20100330

REACTIONS (4)
  - Renal failure acute [None]
  - Nausea [None]
  - Vomiting [None]
  - Abdominal pain [None]
